FAERS Safety Report 9431941 (Version 1)
Quarter: 2013Q3

REPORT INFORMATION
  Report Type: Spontaneous
  Country: RO (occurrence: RO)
  Receive Date: 20130731
  Receipt Date: 20130731
  Transmission Date: 20140515
  Serious: Yes (Life-Threatening, Other)
  Sender: FDA-Public Use
  Company Number: RO-BRISTOL-MYERS SQUIBB COMPANY-19153048

PATIENT
  Sex: Female

DRUGS (3)
  1. HYDREA [Suspect]
     Indication: POLYCYTHAEMIA VERA
  2. PACLITAXEL [Interacting]
     Indication: BREAST CANCER METASTATIC
  3. CARBOPLATIN [Interacting]
     Indication: BREAST CANCER METASTATIC

REACTIONS (3)
  - Respiratory failure [Unknown]
  - Atrial fibrillation [Unknown]
  - Drug interaction [Unknown]
